FAERS Safety Report 7271181-X (Version None)
Quarter: 2011Q1

REPORT INFORMATION
  Report Type: 
  Country: None (occurrence: None)
  Receive Date: 20110202
  Receipt Date: 20110131
  Transmission Date: 20110831
  Serious: Yes (Other)
  Sender: FDA-Public Use
  Company Number: US-PFIZER INC-2011022205

PATIENT
  Sex: Male

DRUGS (1)
  1. XANAX [Suspect]
     Dosage: UNK
     Route: 048

REACTIONS (2)
  - DEPENDENCE [None]
  - CONVULSION [None]
